FAERS Safety Report 12532682 (Version 12)
Quarter: 2019Q3

REPORT INFORMATION
  Report Type: Spontaneous
  Country: US (occurrence: US)
  Receive Date: 20160706
  Receipt Date: 20190927
  Transmission Date: 20191004
  Serious: Yes (Hospitalization)
  Sender: FDA-Public Use
  Company Number: US-ACTELION-A-NJ2016-138169

PATIENT
  Age: 44 Year
  Sex: Female
  Weight: 58.96 kg

DRUGS (6)
  1. TYVASO [Concomitant]
     Active Substance: TREPROSTINIL
     Dosage: 3 BREATHS/MIN PER TREATMENT
     Route: 055
  2. REMODULIN [Suspect]
     Active Substance: TREPROSTINIL
     Dosage: 0.028
     Route: 065
  3. REVATIO [Concomitant]
     Active Substance: SILDENAFIL CITRATE
     Dosage: 60 MG, TID
     Route: 048
  4. OPSUMIT [Suspect]
     Active Substance: MACITENTAN
     Indication: PULMONARY HYPERTENSION
     Dosage: 10 MG, QD
     Route: 048
     Dates: start: 20150205
  5. REMODULIN [Suspect]
     Active Substance: TREPROSTINIL
     Indication: PRODUCT USED FOR UNKNOWN INDICATION
     Dosage: 0.014 ML PER HOUR
     Route: 058
  6. REVATIO [Concomitant]
     Active Substance: SILDENAFIL CITRATE
     Dosage: 40 MG, TID
     Route: 048

REACTIONS (21)
  - Feeling abnormal [Unknown]
  - Syncope [Unknown]
  - Loss of consciousness [Unknown]
  - Infusion site reaction [Unknown]
  - Impaired work ability [Unknown]
  - Dyspnoea [Unknown]
  - Infusion site hypoaesthesia [Unknown]
  - Diarrhoea [Unknown]
  - Disease progression [Unknown]
  - Fall [Unknown]
  - Dizziness [Unknown]
  - Chest pain [Unknown]
  - Palpitations [Unknown]
  - Hypoaesthesia [Unknown]
  - Exercise tolerance decreased [Unknown]
  - Infusion site pain [Not Recovered/Not Resolved]
  - Infusion site swelling [Not Recovered/Not Resolved]
  - Epistaxis [Unknown]
  - Nausea [Unknown]
  - Infusion site erythema [Unknown]
  - Dermatitis contact [Unknown]

NARRATIVE: CASE EVENT DATE: 201904
